FAERS Safety Report 15075501 (Version 1)
Quarter: 2018Q2

REPORT INFORMATION
  Report Type: Spontaneous
  Country: US (occurrence: US)
  Receive Date: 20180627
  Receipt Date: 20180627
  Transmission Date: 20180711
  Serious: Yes (Other)
  Sender: FDA-Public Use
  Company Number: US-SAOL THERAPEUTICS-2018SAO00713

PATIENT
  Sex: Male

DRUGS (2)
  1. BACLOFEN. [Suspect]
     Active Substance: BACLOFEN
     Indication: SPINAL PAIN
     Route: 037
  2. FENTANYL. [Suspect]
     Active Substance: FENTANYL
     Route: 037

REACTIONS (5)
  - Off label use [Unknown]
  - Drug withdrawal syndrome [Unknown]
  - Malaise [Unknown]
  - Vomiting [Unknown]
  - Implant site infection [Unknown]

NARRATIVE: CASE EVENT DATE: 20180407
